FAERS Safety Report 6987469-3 (Version None)
Quarter: 2010Q3

REPORT INFORMATION
  Report Type: 
  Country: None (occurrence: None)
  Receive Date: 20100916
  Receipt Date: 20100909
  Transmission Date: 20110219
  Serious: Yes (Life-Threatening, Other)
  Sender: FDA-Public Use
  Company Number: GB-BRISTOL-MYERS SQUIBB COMPANY-15268303

PATIENT
  Age: 19 Year
  Sex: Female

DRUGS (14)
  1. ETOPOPHOS PRESERVATIVE FREE [Suspect]
     Route: 042
     Dates: start: 20070915
  2. PARACETAMOL IV [Suspect]
     Route: 042
  3. MORPHINE SULFATE [Suspect]
     Route: 042
  4. ACYCLOVIR SODIUM [Suspect]
  5. ALLOPURINOL [Suspect]
     Route: 048
  6. CASPOFUNGIN ACETATE [Suspect]
     Route: 042
  7. CHLORPHENIRAMINE MALEATE [Suspect]
     Route: 042
  8. CYCLOSPORINE [Suspect]
  9. KETALAR [Suspect]
     Indication: PAIN
     Route: 042
     Dates: start: 20070921, end: 20070928
  10. NORETHISTERONE [Suspect]
     Route: 048
  11. OMEPRAZOLE [Suspect]
  12. ONDANSETRON [Suspect]
     Dosage: ALSO TAKEN 6 MG OD
     Route: 042
  13. TAZOCIN [Suspect]
     Route: 042
  14. VORICONAZOLE [Suspect]
     Route: 048

REACTIONS (4)
  - DILATATION INTRAHEPATIC DUCT ACQUIRED [None]
  - HEPATOTOXICITY [None]
  - LIVER FUNCTION TEST ABNORMAL [None]
  - VENOOCCLUSIVE LIVER DISEASE [None]
